FAERS Safety Report 7308944-8 (Version None)
Quarter: 2011Q1

REPORT INFORMATION
  Report Type: 
  Country: None (occurrence: None)
  Receive Date: 20110210
  Receipt Date: 20110131
  Transmission Date: 20110831
  Serious: Yes (Other)
  Sender: FDA-Public Use
  Company Number: 2010MA001661

PATIENT
  Age: 77 Year
  Sex: Female
  Weight: 66.6788 kg

DRUGS (11)
  1. ACTONEL [Concomitant]
  2. NEXIUM [Concomitant]
  3. CEFTIN [Concomitant]
  4. LASIX [Concomitant]
  5. NEURONTIN [Concomitant]
  6. LYRICA [Concomitant]
  7. ULTRACET [Concomitant]
  8. METOCLOPRAMIDE [Suspect]
     Dosage: 10 MG; PO
     Route: 048
     Dates: start: 20080201, end: 20090101
  9. LODINE [Concomitant]
  10. RISPERDAL [Concomitant]
  11. TYLENOL [Concomitant]

REACTIONS (12)
  - DYSKINESIA [None]
  - TARDIVE DYSKINESIA [None]
  - ABDOMINAL PAIN UPPER [None]
  - URINARY TRACT INFECTION [None]
  - PAIN IN EXTREMITY [None]
  - DYSPNOEA [None]
  - AGITATION [None]
  - NAUSEA [None]
  - AKATHISIA [None]
  - TONGUE BITING [None]
  - MICROCYTIC ANAEMIA [None]
  - ARTHRALGIA [None]
